FAERS Safety Report 7292723-4 (Version None)
Quarter: 2011Q1

REPORT INFORMATION
  Report Type: 
  Country: None (occurrence: None)
  Receive Date: 20110215
  Receipt Date: 20110204
  Transmission Date: 20110831
  Serious: Yes (Life-Threatening, Hospitalization)
  Sender: FDA-Public Use
  Company Number: US-BAXTER-2011BH002201

PATIENT
  Age: 52 Year
  Sex: Male
  Weight: 117 kg

DRUGS (10)
  1. MULTI-VITAMINS [Concomitant]
     Route: 048
  2. STARLIX [Concomitant]
     Route: 048
  3. ANTIDEPRESSANTS [Concomitant]
     Route: 048
  4. GAMMAGARD LIQUID [Suspect]
     Indication: IMMUNODEFICIENCY
     Route: 042
     Dates: start: 20110114, end: 20110114
  5. PREDNISONE TAB [Concomitant]
     Indication: PREMEDICATION
     Route: 048
     Dates: start: 20110114, end: 20110114
  6. DIOVANE [Concomitant]
     Route: 048
  7. GAMMAGARD LIQUID [Suspect]
     Route: 042
     Dates: start: 20110114, end: 20110114
  8. GAMMAGARD LIQUID [Suspect]
     Route: 042
     Dates: start: 20070301, end: 20110125
  9. REQUIP [Concomitant]
     Route: 048
  10. PREGABALIN [Concomitant]
     Route: 048

REACTIONS (1)
  - CEREBROVASCULAR ACCIDENT [None]
